FAERS Safety Report 5021800-3 (Version None)
Quarter: 2006Q2

REPORT INFORMATION
  Report Type: 
  Country: None (occurrence: None)
  Receive Date: 20060605
  Receipt Date: 20060523
  Transmission Date: 20061013
  Serious: Yes (Hospitalization)
  Sender: FDA-Public Use
  Company Number: T06-USA-01996-01

PATIENT
  Age: 40 Year
  Sex: Male

DRUGS (2)
  1. CAMPRAL [Suspect]
     Indication: ALCOHOLISM
     Dosage: 1000 MG TID PO
     Route: 048
     Dates: start: 20010914
  2. NALTREXONE (UNBLINDED) (NALTREXONE) [Suspect]
     Indication: ALCOHOLISM
     Dosage: 50 MG BID PO
     Route: 048
     Dates: start: 20010914

REACTIONS (1)
  - PERICARDITIS [None]
